FAERS Safety Report 10395111 (Version 1)
Quarter: 2014Q3

REPORT INFORMATION
  Report Type: Spontaneous
  Country: US (occurrence: None)
  Receive Date: 20140815
  Receipt Date: 20140815
  Transmission Date: 20150326
  Serious: No
  Sender: FDA-Public Use
  Company Number: None

PATIENT
  Age: 54 Year
  Sex: Female
  Weight: 79.5 kg

DRUGS (10)
  1. NICOTINE. [Suspect]
     Active Substance: NICOTINE
  2. BUPROPRION [Concomitant]
     Active Substance: BUPROPION
  3. TRAZADONE 300 MG QHS [Concomitant]
  4. CLONAZEPAM 2 MG QHS [Concomitant]
  5. PREMARIN [Suspect]
     Active Substance: ESTROGENS, CONJUGATED
     Indication: HORMONE REPLACEMENT THERAPY
     Route: 048
     Dates: start: 1990
  6. ABILIFY [Concomitant]
     Active Substance: ARIPIPRAZOLE
  7. VITAMIN D2 1 TAB QD [Concomitant]
  8. VIIBRYD 40 MG QD [Concomitant]
  9. PREMARIN 1.25MG QHS [Concomitant]
  10. WARFARIN 1.25 MG QHS [Concomitant]

REACTIONS (1)
  - Pulmonary embolism [None]

NARRATIVE: CASE EVENT DATE: 20140728
